FAERS Safety Report 10375525 (Version 1)
Quarter: 2014Q1

REPORT INFORMATION
  Report Type: Spontaneous
  Country: US (occurrence: None)
  Receive Date: 20140306
  Receipt Date: 20140306
  Transmission Date: 20141002
  Serious: Yes (Hospitalization, Other)
  Sender: FDA-Public Use
  Company Number: 163-21880-13010640

PATIENT
  Age: 65 Year
  Sex: Female

DRUGS (1)
  1. REVLIMID [Suspect]
     Indication: PLASMA CELL MYELOMA
     Dosage: 25-JAN-2011 - TEMP. INTERRUPTED?5 MG, 21 IN 28 D, PO
     Route: 048
     Dates: start: 20110125

REACTIONS (1)
  - Plasma cell myeloma [None]
